FAERS Safety Report 7994286-4 (Version None)
Quarter: 2011Q4

REPORT INFORMATION
  Report Type: 
  Country: None (occurrence: None)
  Receive Date: 20111220
  Receipt Date: 20111207
  Transmission Date: 20120403
  Serious: Yes (Other)
  Sender: FDA-Public Use
  Company Number: US-JNJFOC-20111203237

PATIENT
  Sex: Male

DRUGS (2)
  1. SIMPONI [Suspect]
     Indication: PSORIATIC ARTHROPATHY
     Route: 058
     Dates: start: 20100101
  2. HUMIRA [Suspect]
     Indication: PSORIATIC ARTHROPATHY
     Dates: end: 20110901

REACTIONS (3)
  - DIVERTICULITIS [None]
  - CELLULITIS [None]
  - DRUG INEFFECTIVE [None]
